FAERS Safety Report 8473909-X (Version None)
Quarter: 2012Q2

REPORT INFORMATION
  Report Type: 
  Country: None (occurrence: None)
  Receive Date: 20120628
  Receipt Date: 20120608
  Transmission Date: 20120825
  Serious: Yes (Other)
  Sender: FDA-Public Use
  Company Number: US-MYLANLABS-2012S1001942

PATIENT
  Age: 51 Year
  Sex: Male
  Weight: 108.41 kg

DRUGS (21)
  1. CLONIDINE [Concomitant]
  2. CLOZAPINE [Suspect]
     Dates: start: 20120101
  3. CLOZAPINE [Suspect]
     Route: 048
     Dates: end: 20120427
  4. DEXILANT [Concomitant]
  5. CLOZAPINE [Suspect]
     Indication: POLYDIPSIA PSYCHOGENIC
     Dates: start: 20111213, end: 20120101
  6. ATARAX [Concomitant]
  7. ADVAIR DISKUS 100/50 [Concomitant]
     Dosage: 250/50
  8. AMLODIPINE [Concomitant]
  9. DIVALPROEX SODIUM [Concomitant]
  10. CLOZAPINE [Suspect]
     Dates: start: 20120101
  11. CLOZAPINE [Suspect]
     Route: 048
     Dates: end: 20120427
  12. CLOZAPINE [Suspect]
     Route: 048
     Dates: start: 20110820, end: 20120420
  13. CLOZAPINE [Suspect]
     Route: 048
     Dates: start: 20110820, end: 20120420
  14. SIMVASTATIN [Concomitant]
  15. DEPAKOTE [Concomitant]
  16. CLOZAPINE [Suspect]
     Dates: start: 20120101
  17. CLOZAPINE [Suspect]
     Route: 048
     Dates: end: 20120427
  18. CLOZAPINE [Suspect]
     Route: 048
     Dates: start: 20110820, end: 20120420
  19. CLOZAPINE [Suspect]
     Indication: IMPULSE-CONTROL DISORDER
     Dates: start: 20111213, end: 20120101
  20. CLOZAPINE [Suspect]
     Dates: start: 20111213, end: 20120101
  21. SINGULAIR [Concomitant]

REACTIONS (1)
  - GRANULOCYTOPENIA [None]
